FAERS Safety Report 7731830-6 (Version None)
Quarter: 2011Q3

REPORT INFORMATION
  Report Type: 
  Country: None (occurrence: None)
  Receive Date: 20110906
  Receipt Date: 20110824
  Transmission Date: 20111222
  Serious: Yes (Hospitalization)
  Sender: FDA-Public Use
  Company Number: CH-SANOFI-AVENTIS-2011SA054878

PATIENT
  Age: 86 Year
  Sex: Female

DRUGS (10)
  1. ASPIRIN [Interacting]
     Route: 048
     Dates: start: 20110713
  2. AMLODIPINE BESYLATE [Interacting]
     Indication: ACUTE MYOCARDIAL INFARCTION
     Route: 048
     Dates: start: 20110701
  3. ATORVASTATIN CALCIUM [Interacting]
     Indication: ACUTE MYOCARDIAL INFARCTION
     Route: 048
     Dates: start: 20110701
  4. LOSARTAN POTASSIUM [Interacting]
     Indication: ESSENTIAL HYPERTENSION
     Route: 048
  5. PLAVIX [Suspect]
     Route: 048
     Dates: start: 20110713
  6. MAGNESIOCARD /SCH/ [Concomitant]
     Dosage: DOSE:1 UNIT(S)
     Route: 048
     Dates: start: 20110701
  7. MARCUMAR [Interacting]
     Indication: ATRIAL FIBRILLATION
     Dosage: DOSE:1 UNIT(S)
     Route: 048
     Dates: end: 20110727
  8. FLUDEX - SLOW RELEASE [Concomitant]
     Route: 048
  9. BISOPROLOL FUMARATE [Concomitant]
     Route: 048
     Dates: start: 20110701
  10. PANTOPRAZOLE [Interacting]
     Indication: PROPHYLAXIS
     Route: 048
     Dates: start: 20110701

REACTIONS (6)
  - INTERNATIONAL NORMALISED RATIO INCREASED [None]
  - DRUG INTERACTION [None]
  - MELAENA [None]
  - GASTRIC ULCER HAEMORRHAGE [None]
  - HAEMORRHAGIC ANAEMIA [None]
  - RENAL FAILURE ACUTE [None]
